FAERS Safety Report 23391936 (Version 1)
Quarter: 2024Q1

REPORT INFORMATION
  Report Type: Spontaneous
  Country: US (occurrence: US)
  Receive Date: 20240111
  Receipt Date: 20240111
  Transmission Date: 20240410
  Serious: No
  Sender: FDA-Public Use
  Company Number: US-NAPO PHARMACEUTICALS-2023US002532

PATIENT

DRUGS (2)
  1. MYTESI [Suspect]
     Active Substance: CROFELEMER
     Indication: Diarrhoea
     Dosage: 125 MG, TID
     Route: 048
     Dates: start: 20210204
  2. PRAMIPEXOLE [Concomitant]
     Active Substance: PRAMIPEXOLE\PRAMIPEXOLE DIHYDROCHLORIDE
     Indication: Product used for unknown indication
     Dosage: 0.5 MG
     Route: 065

REACTIONS (3)
  - Influenza [Unknown]
  - Malaise [Unknown]
  - Nausea [Unknown]
